FAERS Safety Report 6656201-5 (Version None)
Quarter: 2010Q1

REPORT INFORMATION
  Report Type: 
  Country: None (occurrence: None)
  Receive Date: 20100329
  Receipt Date: 20100325
  Transmission Date: 20100710
  Serious: Yes (Other)
  Sender: FDA-Public Use
  Company Number: NL-TEVA-228936ISR

PATIENT
  Sex: Male
  Weight: 3 kg

DRUGS (1)
  1. METHYLDOPA [Suspect]
     Indication: PRE-ECLAMPSIA
     Route: 064
     Dates: start: 20090316, end: 20090516

REACTIONS (1)
  - SOMNOLENCE [None]
